FAERS Safety Report 13936922 (Version 3)
Quarter: 2018Q2

REPORT INFORMATION
  Report Type: Report from Study
  Country: US (occurrence: US)
  Receive Date: 20170905
  Receipt Date: 20180419
  Transmission Date: 20180711
  Serious: Yes (Other)
  Sender: FDA-Public Use
  Company Number: US-PFIZER INC-2017369640

PATIENT
  Age: 62 Year
  Sex: Male

DRUGS (5)
  1. ACYCLOVIR. [Concomitant]
     Active Substance: ACYCLOVIR
     Dosage: UNK, DAILY
  2. IMBRUVICA [Suspect]
     Active Substance: IBRUTINIB
     Dosage: 420 MG, 1X/DAY
     Route: 048
  3. IMBRUVICA [Suspect]
     Active Substance: IBRUTINIB
     Indication: CHRONIC LYMPHOCYTIC LEUKAEMIA
     Dosage: 280 MG, 1X/DAY
     Route: 048
     Dates: start: 20140407
  4. FLUCONAZOLE. [Suspect]
     Active Substance: FLUCONAZOLE
     Dosage: UNK
  5. IMBRUVICA [Suspect]
     Active Substance: IBRUTINIB
     Dosage: 280 MG, 1X/DAY
     Route: 048

REACTIONS (17)
  - Hypotension [Unknown]
  - Incorrect dose administered [Unknown]
  - Hyposmia [Recovered/Resolved]
  - Muscle spasms [Recovered/Resolved]
  - Fatigue [Recovered/Resolved]
  - Renal disorder [Recovered/Resolved]
  - Diarrhoea [Recovered/Resolved]
  - Lymphoedema [Unknown]
  - Asthenia [Recovered/Resolved]
  - Gastric disorder [Unknown]
  - Off label use [Unknown]
  - Weight decreased [Unknown]
  - Productive cough [Unknown]
  - Gastric disorder [Recovered/Resolved]
  - Bone pain [Recovered/Resolved]
  - Hypogeusia [Recovered/Resolved]
  - Nausea [Unknown]

NARRATIVE: CASE EVENT DATE: 20140407
